FAERS Safety Report 17388519 (Version 4)
Quarter: 2023Q2

REPORT INFORMATION
  Report Type: Spontaneous
  Country: US (occurrence: US)
  Receive Date: 20200207
  Receipt Date: 20230614
  Transmission Date: 20230722
  Serious: No
  Sender: FDA-Public Use
  Company Number: US-PFIZER INC-2018100883

PATIENT
  Age: 73 Year
  Sex: Female
  Weight: 45.81 kg

DRUGS (2)
  1. XELJANZ [Suspect]
     Active Substance: TOFACITINIB CITRATE
     Indication: Rheumatoid arthritis
     Dosage: 5 MG, 2X/DAY
     Route: 048
  2. MOBIC [Concomitant]
     Active Substance: MELOXICAM
     Indication: Inflammation
     Dosage: 15 MG, 1X/DAY
     Route: 048

REACTIONS (1)
  - Influenza [Unknown]
